FAERS Safety Report 12519296 (Version 1)
Quarter: 2016Q2

REPORT INFORMATION
  Report Type: Spontaneous
  Country: FR (occurrence: FR)
  Receive Date: 20160630
  Receipt Date: 20160630
  Transmission Date: 20160815
  Serious: Yes (Other)
  Sender: FDA-Public Use
  Company Number: FR-PFIZER INC-2016321709

PATIENT
  Age: 66 Year
  Sex: Female

DRUGS (2)
  1. INLYTA [Suspect]
     Active Substance: AXITINIB
  2. LEVOTHYROX [Concomitant]
     Active Substance: LEVOTHYROXINE

REACTIONS (1)
  - Haemolytic anaemia [Unknown]
